FAERS Safety Report 14861921 (Version 2)
Quarter: 2018Q4

REPORT INFORMATION
  Report Type: Report from Study
  Country: GB (occurrence: GB)
  Receive Date: 20180508
  Receipt Date: 20181205
  Transmission Date: 20190204
  Serious: Yes (Hospitalization, Other)
  Sender: FDA-Public Use
  Company Number: GB-GLAXOSMITHKLINE-GB2018GSK078830

PATIENT
  Age: 41 Year
  Sex: Female
  Weight: 48.9 kg

DRUGS (17)
  1. AMLODIPINE [Concomitant]
     Active Substance: AMLODIPINE BESYLATE
     Dosage: 5 MG, 1D
  2. PREDNISOLONE. [Concomitant]
     Active Substance: PREDNISOLONE
     Dosage: 30 MG, QD
     Dates: start: 20130201
  3. LIQUID PARAFFIN/WHITE SOFT PARAFFIN [Concomitant]
     Dosage: 1 DF, QID
     Dates: start: 20171020
  4. MYCOPHENOLATE MOFETIL. [Concomitant]
     Active Substance: MYCOPHENOLATE MOFETIL
     Dosage: 500 MG, BID
     Dates: start: 20171020
  5. BELIMUMAB [Suspect]
     Active Substance: BELIMUMAB
     Indication: SYSTEMIC LUPUS ERYTHEMATOSUS
     Dosage: 496 MG, CYC
     Route: 042
     Dates: start: 20171107, end: 20171107
  6. BELIMUMAB [Suspect]
     Active Substance: BELIMUMAB
     Dosage: 496 MG, CYC
     Route: 042
     Dates: start: 20171124, end: 20171124
  7. BELIMUMAB [Suspect]
     Active Substance: BELIMUMAB
     Dosage: 496 MG, CYC
     Route: 042
     Dates: start: 20180102, end: 20180102
  8. BELIMUMAB [Suspect]
     Active Substance: BELIMUMAB
     Dosage: 510 MG, CYC
     Route: 042
     Dates: start: 20180323, end: 20180323
  9. CLOBETASOL CREAM [Concomitant]
     Active Substance: CLOBETASOL
     Dosage: 1 DF, 1D
     Dates: start: 20171020
  10. TACROLIMUS OINTMENT [Concomitant]
     Active Substance: TACROLIMUS
     Dosage: UNK
     Dates: start: 20170623
  11. AVEENO [Concomitant]
     Active Substance: DIMETHICONE\HOMOSALATE\OCTINOXATE\OCTISALATE\TITANIUM DIOXIDE
     Dosage: 1 DF, QID
     Dates: start: 20171020
  12. BELIMUMAB [Suspect]
     Active Substance: BELIMUMAB
     Dosage: 510 MG, CYC
     Route: 042
     Dates: start: 20180323, end: 20180323
  13. APIXABAN [Concomitant]
     Active Substance: APIXABAN
     Dosage: 2.5 MG, BID
     Dates: start: 20171103
  14. HYDROXYCHLOROQUINE [Concomitant]
     Active Substance: HYDROXYCHLOROQUINE
     Dosage: 200 MG, 1D
     Dates: start: 20100901
  15. METFORMIN HYDROCHLORIDE. [Concomitant]
     Active Substance: METFORMIN HYDROCHLORIDE
     Dosage: 500 MG, BID
     Dates: start: 20130717
  16. RAMIPRIL. [Concomitant]
     Active Substance: RAMIPRIL
     Dosage: 10 MG, 1D
     Dates: start: 20170519
  17. CARBOCISTEINE [Concomitant]
     Active Substance: CARBOCYSTEINE
     Dosage: 750 MG, BID

REACTIONS (4)
  - Pleural effusion [Recovered/Resolved]
  - Serositis [Recovered/Resolved]
  - Productive cough [Recovered/Resolved]
  - Lower respiratory tract infection [Recovered/Resolved]

NARRATIVE: CASE EVENT DATE: 20180327
